FAERS Safety Report 6543133-6 (Version None)
Quarter: 2010Q1

REPORT INFORMATION
  Report Type: 
  Country: None (occurrence: None)
  Receive Date: 20100120
  Receipt Date: 20100114
  Transmission Date: 20100710
  Serious: Yes (Death, Hospitalization, Other)
  Sender: FDA-Public Use
  Company Number: PHHY2010BR02089

PATIENT
  Sex: Female

DRUGS (3)
  1. EXELON [Suspect]
     Dosage: 6 MG, UNK
  2. MEMANTINE HCL [Concomitant]
     Dosage: UNK,UNK
  3. RIVOTRIL [Concomitant]
     Dosage: UNK,UNK

REACTIONS (4)
  - DEATH [None]
  - DEMENTIA ALZHEIMER'S TYPE [None]
  - INFARCTION [None]
  - PNEUMONIA [None]
